FAERS Safety Report 8242662-7 (Version None)
Quarter: 2012Q1

REPORT INFORMATION
  Report Type: 
  Country: None (occurrence: None)
  Receive Date: 20120329
  Receipt Date: 20120320
  Transmission Date: 20120608
  Serious: Yes (Hospitalization)
  Sender: FDA-Public Use
  Company Number: US-CELGENEUS-163-CCAZA-12032330

PATIENT
  Sex: Male

DRUGS (17)
  1. MYLOTARG [Suspect]
     Dosage: 6.75 MILLIGRAM
     Route: 065
     Dates: start: 20120206, end: 20120206
  2. VIDAZA [Suspect]
     Dosage: 167 MILLIGRAM
     Route: 041
     Dates: start: 20120302, end: 20120308
  3. MYLOTARG [Suspect]
     Dosage: 6.69 MILLIGRAM
     Route: 065
     Dates: start: 20120309, end: 20120309
  4. ACTOS [Concomitant]
     Dosage: 15 MILLIGRAM
     Route: 048
  5. ATIVAN [Concomitant]
     Dosage: 1 MILLIGRAM
     Route: 048
  6. VIDAZA [Suspect]
     Dosage: 169 MILLIGRAM
     Route: 041
     Dates: start: 20120203, end: 20120209
  7. MYLOTARG [Suspect]
     Dosage: 6.75 MILLIGRAM
     Route: 065
     Dates: start: 20120210, end: 20120210
  8. VORINOSTAT [Suspect]
     Dosage: 400
     Route: 048
     Dates: start: 20120203, end: 20120211
  9. RED CELL [Concomitant]
     Route: 041
     Dates: start: 20120101, end: 20120101
  10. PLATELETS [Concomitant]
     Route: 041
     Dates: start: 20120101, end: 20120101
  11. COMPAZINE [Concomitant]
     Route: 048
  12. VORINOSTAT [Suspect]
     Dosage: 400
     Route: 048
     Dates: start: 20120302, end: 20120310
  13. CLARITIN [Concomitant]
     Dosage: 10 MILLIGRAM
     Route: 048
  14. METFORMIN HCL [Concomitant]
     Dosage: 500 MILLIGRAM
     Route: 048
  15. MYLOTARG [Suspect]
     Dosage: 6.69 MILLIGRAM
     Route: 065
     Dates: start: 20120305, end: 20120305
  16. COZAAR [Concomitant]
     Dosage: 50 MILLIGRAM
     Route: 048
  17. PROTONIX [Concomitant]
     Dosage: 40 MILLIGRAM
     Route: 048

REACTIONS (2)
  - ADVERSE DRUG REACTION [None]
  - PERIRECTAL ABSCESS [None]
